FAERS Safety Report 6730078-1 (Version None)
Quarter: 2010Q2

REPORT INFORMATION
  Report Type: 
  Country: None (occurrence: None)
  Receive Date: 20100513
  Receipt Date: 20100427
  Transmission Date: 20101027
  Serious: No
  Sender: FDA-Public Use
  Company Number: B0651442A

PATIENT
  Age: 28 Year
  Sex: Female

DRUGS (3)
  1. EPOPROSTENOL SODIUM [Suspect]
     Dosage: INTRAVENOUS
     Route: 042
  2. ENOXAPARIN (FORMULATION UNKNOWN) (ENOXAPARIN) [Suspect]
  3. OXYGEN [Concomitant]

REACTIONS (9)
  - CAESAREAN SECTION [None]
  - DRUG EXPOSURE DURING PREGNANCY [None]
  - DYSPNOEA [None]
  - HAEMOPTYSIS [None]
  - HYPERTENSION [None]
  - NAUSEA [None]
  - PREMATURE LABOUR [None]
  - PULMONARY OEDEMA [None]
  - UTERINE CONTRACTIONS DURING PREGNANCY [None]
